FAERS Safety Report 19723862 (Version 2)
Quarter: 2021Q3

REPORT INFORMATION
  Report Type: Report from Study
  Country: US (occurrence: US)
  Receive Date: 20210820
  Receipt Date: 20210830
  Transmission Date: 20211014
  Serious: Yes (Hospitalization, Other)
  Sender: FDA-Public Use
  Company Number: US-AMGEN-USASL2021049267

PATIENT
  Age: 62 Year
  Sex: Female

DRUGS (9)
  1. PRAZOSIN. [Concomitant]
     Active Substance: PRAZOSIN
     Indication: DEPRESSION
     Dosage: UNK
  2. VENLAFAXINE [Concomitant]
     Active Substance: VENLAFAXINE HYDROCHLORIDE
     Indication: ANXIETY
  3. BUSPAR [Concomitant]
     Active Substance: BUSPIRONE HYDROCHLORIDE
     Indication: DEPRESSION
     Dosage: UNK
  4. OTEZLA [Suspect]
     Active Substance: APREMILAST
     Indication: PSORIATIC ARTHROPATHY
     Dosage: 30 MILLIGRAM, BID
     Route: 065
     Dates: start: 2020
  5. COVID?19 VACCINE NOS. [Suspect]
     Active Substance: COVID-19 VACCINE NOS
     Indication: PRODUCT USED FOR UNKNOWN INDICATION
     Dosage: UNK
     Route: 065
     Dates: start: 20210326
  6. OTEZLA [Suspect]
     Active Substance: APREMILAST
     Indication: PSORIASIS
     Dosage: 30 MILLIGRAM, QD
     Route: 065
     Dates: start: 202108, end: 20210816
  7. PRAZOSIN. [Concomitant]
     Active Substance: PRAZOSIN
     Indication: ANXIETY
  8. VENLAFAXINE [Concomitant]
     Active Substance: VENLAFAXINE HYDROCHLORIDE
     Indication: DEPRESSION
     Dosage: UNK
  9. BUSPAR [Concomitant]
     Active Substance: BUSPIRONE HYDROCHLORIDE
     Indication: ANXIETY

REACTIONS (21)
  - Ear pain [Unknown]
  - Skin exfoliation [Unknown]
  - Diarrhoea [Recovering/Resolving]
  - Vertigo [Unknown]
  - Hypertension [Unknown]
  - Ocular discomfort [Unknown]
  - Fall [Not Recovered/Not Resolved]
  - Choking [Unknown]
  - Pyrexia [Unknown]
  - Vomiting [Recovering/Resolving]
  - Migraine [Not Recovered/Not Resolved]
  - Palpitations [Unknown]
  - Lymphadenitis [Unknown]
  - Gastric dilatation [Not Recovered/Not Resolved]
  - Blood potassium decreased [Unknown]
  - Asthenia [Not Recovered/Not Resolved]
  - Nausea [Recovering/Resolving]
  - Sleep disorder [Unknown]
  - Depression [Unknown]
  - Blood electrolytes decreased [Unknown]
  - Feeling abnormal [Unknown]

NARRATIVE: CASE EVENT DATE: 2021
